FAERS Safety Report 9215583 (Version 1)
Quarter: 2013Q2

REPORT INFORMATION
  Report Type: Spontaneous
  Country: AR (occurrence: AR)
  Receive Date: 20130408
  Receipt Date: 20130408
  Transmission Date: 20140414
  Serious: Yes (Hospitalization)
  Sender: FDA-Public Use
  Company Number: AR-AMGEN-ARGSP2013023128

PATIENT
  Age: 54 Year
  Sex: Female

DRUGS (2)
  1. ENBREL [Suspect]
     Indication: RHEUMATOID ARTHRITIS
     Dosage: 50 MG, QWK
     Dates: start: 20080429, end: 201303
  2. ENBREL [Suspect]
     Dosage: 50 MG, WEEKLY
     Dates: start: 201303

REACTIONS (4)
  - Presyncope [Not Recovered/Not Resolved]
  - Hypersensitivity [Recovered/Resolved]
  - Application site swelling [Recovered/Resolved]
  - Application site bruise [Recovering/Resolving]
